FAERS Safety Report 9734403 (Version 3)
Quarter: 2014Q1

REPORT INFORMATION
  Report Type: Spontaneous
  Country: GB (occurrence: GB)
  Receive Date: 20131206
  Receipt Date: 20140303
  Transmission Date: 20141002
  Serious: Yes (Other)
  Sender: FDA-Public Use
  Company Number: GB-ROCHE-1312683

PATIENT
  Sex: Female

DRUGS (2)
  1. HERCEPTIN [Suspect]
     Indication: PRODUCT USED FOR UNKNOWN INDICATION
     Dosage: CYCLE 9 OF 18
     Route: 065
  2. TAMOXIFEN [Concomitant]

REACTIONS (11)
  - Chest pain [Unknown]
  - Nausea [Unknown]
  - Dyspnoea exertional [Unknown]
  - Fatigue [Unknown]
  - Arthralgia [Unknown]
  - Insomnia [Unknown]
  - Night sweats [Unknown]
  - Pain in extremity [Unknown]
  - Diarrhoea [Unknown]
  - Mouth ulceration [Unknown]
  - Pain in extremity [Unknown]
